FAERS Safety Report 25471580 (Version 2)
Quarter: 2025Q3

REPORT INFORMATION
  Report Type: Spontaneous
  Country: EU (occurrence: EU)
  Receive Date: 20250624
  Receipt Date: 20250704
  Transmission Date: 20251020
  Serious: Yes (Hospitalization, Other)
  Sender: SANOFI AVENTIS
  Company Number: None

PATIENT
  Age: 91 Year
  Sex: Female
  Weight: 57.1 kg

DRUGS (9)
  1. PREDNISONE [Suspect]
     Active Substance: PREDNISONE
     Indication: Rheumatoid arthritis
     Dosage: 1 MG, QD
     Route: 048
     Dates: start: 2017
  2. CLOPIDOGREL BISULFATE [Suspect]
     Active Substance: CLOPIDOGREL BISULFATE
     Indication: Acute coronary syndrome
     Dosage: 75 MG, QD
     Route: 048
     Dates: start: 20250205, end: 20250322
  3. ATORVASTATIN [Suspect]
     Active Substance: ATORVASTATIN
     Dosage: 40 MG, QD
  4. PANTOPRAZOLE [Suspect]
     Active Substance: PANTOPRAZOLE
     Dosage: 20 MG, QD
  5. KARDEGIC [Suspect]
     Active Substance: ASPIRIN DL-LYSINE
  6. KARDEGIC [Suspect]
     Active Substance: ASPIRIN DL-LYSINE
     Dates: start: 20250329
  7. FOLIC ACID [Suspect]
     Active Substance: FOLIC ACID
  8. ELIQUIS [Concomitant]
     Active Substance: APIXABAN
     Indication: Deep vein thrombosis
     Dates: start: 2022, end: 20250322
  9. LOVENOX [Concomitant]
     Active Substance: ENOXAPARIN SODIUM
     Dates: start: 20250322

REACTIONS (4)
  - Oesophagitis [Recovering/Resolving]
  - Melaena [Recovered/Resolved]
  - Dyspepsia [Unknown]
  - Anaemia [Recovering/Resolving]

NARRATIVE: CASE EVENT DATE: 20250318
